FAERS Safety Report 9523383 (Version 3)
Quarter: 2013Q4

REPORT INFORMATION
  Report Type: Spontaneous
  Country: US (occurrence: US)
  Receive Date: 20130913
  Receipt Date: 20131202
  Transmission Date: 20140711
  Serious: Yes (Hospitalization)
  Sender: FDA-Public Use
  Company Number: US-B.I. PHARMACEUTICALS,INC./RIDGEFIELD-2013-BI-28242BP

PATIENT
  Age: 66 Year
  Sex: Female
  Weight: 88 kg

DRUGS (17)
  1. PRADAXA [Suspect]
     Indication: ATRIAL FIBRILLATION
     Dosage: 300 MG
     Route: 048
     Dates: start: 2010
  2. PRADAXA [Suspect]
     Indication: ATRIAL FIBRILLATION
     Dosage: 300 MG
     Route: 048
     Dates: start: 201006, end: 201012
  3. PRADAXA [Suspect]
     Indication: CEREBROVASCULAR ACCIDENT PROPHYLAXIS
  4. CATAPRES TTS [Suspect]
     Indication: HYPERTENSION
     Dosage: 0.2 MG
     Route: 048
  5. CRESTOR [Concomitant]
     Indication: BLOOD CHOLESTEROL INCREASED
     Route: 048
  6. ENALAPRIL [Concomitant]
     Indication: HYPERTENSION
     Dosage: 20 MG
     Route: 048
  7. PAXIL [Concomitant]
     Indication: DEPRESSION
     Dosage: 20 MG
     Route: 048
  8. BYETTA [Concomitant]
     Indication: DIABETES MELLITUS
     Dosage: 20 MCG
     Route: 058
  9. LEVOBUNOLOL [Concomitant]
     Indication: GLAUCOMA
     Dosage: STRENGTH: 0.5%; DAILY DOSE: 0.5%
  10. OMEPRAZOLE [Concomitant]
     Indication: GASTROOESOPHAGEAL REFLUX DISEASE
     Dosage: 20 MG
     Route: 048
  11. METOPROLOL TARTRATE [Concomitant]
     Indication: HYPERTENSION
     Dosage: 100 MG
     Route: 048
  12. DILTIAZEM [Concomitant]
     Route: 048
  13. GLIMEPIRIDE [Concomitant]
     Route: 048
  14. PAROXETINE [Concomitant]
     Route: 048
  15. DIAZEPAM [Concomitant]
     Route: 048
  16. ZOLIDON [Concomitant]
     Route: 048
  17. PREVACID [Concomitant]
     Route: 048

REACTIONS (6)
  - Cerebrovascular accident [Recovered/Resolved]
  - Cerebrovascular accident [Recovered/Resolved]
  - Cerebrovascular accident [Recovered/Resolved with Sequelae]
  - Concussion [Recovered/Resolved]
  - Fall [Recovered/Resolved]
  - Hypoaesthesia [Recovered/Resolved]
